FAERS Safety Report 12355339 (Version 1)
Quarter: 2016Q2

REPORT INFORMATION
  Report Type: Spontaneous
  Country: US (occurrence: None)
  Receive Date: 20160510
  Receipt Date: 20160510
  Transmission Date: 20160815
  Serious: Yes (Hospitalization, Other)
  Sender: FDA-Public Use
  Company Number: None

PATIENT
  Age: 57 Year
  Sex: Female
  Weight: 62.7 kg

DRUGS (1)
  1. GATTEX [Suspect]
     Active Substance: TEDUGLUTIDE\WATER
     Indication: MALABSORPTION
     Route: 058
     Dates: start: 20150212, end: 20160509

REACTIONS (3)
  - Gastric polyps [None]
  - Biliary cyst [None]
  - Cholecystectomy [None]

NARRATIVE: CASE EVENT DATE: 20160505
